FAERS Safety Report 20741574 (Version 2)
Quarter: 2022Q2

REPORT INFORMATION
  Report Type: Report from Study
  Country: US (occurrence: US)
  Receive Date: 20220422
  Receipt Date: 20220508
  Transmission Date: 20220721
  Serious: Yes (Other)
  Sender: FDA-Public Use
  Company Number: US-BRISTOL-MYERS SQUIBB COMPANY-2022-015998

PATIENT
  Age: 69 Year
  Sex: Female
  Weight: 103.87 kg

DRUGS (1)
  1. ORENCIA [Suspect]
     Active Substance: ABATACEPT
     Indication: Rheumatoid arthritis
     Dosage: DOSE : 8;     FREQ : EVERY WEEK
     Route: 058
     Dates: start: 202201

REACTIONS (3)
  - Device defective [Unknown]
  - Device malfunction [Unknown]
  - Injury associated with device [Unknown]

NARRATIVE: CASE EVENT DATE: 20220331
